FAERS Safety Report 7474581-8 (Version None)
Quarter: 2011Q2

REPORT INFORMATION
  Report Type: 
  Country: None (occurrence: None)
  Receive Date: 20110503
  Receipt Date: 20110411
  Transmission Date: 20111010
  Serious: Yes (Other)
  Sender: FDA-Public Use
  Company Number: 030938

PATIENT
  Sex: Female

DRUGS (7)
  1. THYRAX /00068001/ [Concomitant]
  2. CIMZIA [Suspect]
  3. CIMZIA [Suspect]
  4. ATENOLOL [Concomitant]
  5. CYTOMEL [Concomitant]
  6. CIMZIA [Suspect]
     Indication: RHEUMATOID ARTHRITIS
     Dosage: (0,2AND TWO SC INJECTION SUBCUTANEOUS), (1 SC INJECTION SUBCUTANEOUS)
     Route: 058
     Dates: start: 20110101, end: 20110411
  7. CIMZIA [Suspect]
     Indication: RHEUMATOID ARTHRITIS
     Dosage: (0,2AND TWO SC INJECTION SUBCUTANEOUS), (1 SC INJECTION SUBCUTANEOUS)
     Route: 058
     Dates: start: 20110207, end: 20110211

REACTIONS (3)
  - SKIN PLAQUE [None]
  - ORAL FUNGAL INFECTION [None]
  - VULVOVAGINAL MYCOTIC INFECTION [None]
